FAERS Safety Report 5760060-2 (Version None)
Quarter: 2008Q2

REPORT INFORMATION
  Report Type: 
  Country: None (occurrence: None)
  Receive Date: 20080605
  Receipt Date: 20080528
  Transmission Date: 20081010
  Serious: Yes (Hospitalization, Other)
  Sender: FDA-Public Use
  Company Number: JP-SANOFI-SYNTHELABO-A01200806077

PATIENT
  Sex: Male

DRUGS (19)
  1. AZD2171 [Concomitant]
     Route: 048
     Dates: start: 20080221, end: 20080513
  2. FLUOROURACIL [Concomitant]
     Route: 040
     Dates: start: 20080306, end: 20080306
  3. FLUOROURACIL [Concomitant]
     Route: 041
     Dates: start: 20080306, end: 20080307
  4. LACTEC [Concomitant]
     Indication: ANOREXIA
     Route: 041
     Dates: start: 20080513
  5. MOBIC [Concomitant]
     Indication: CANCER PAIN
     Route: 048
     Dates: start: 20080508
  6. CANDESARTAN CILEXETIL [Concomitant]
     Indication: HYPERTENSION
     Route: 048
     Dates: start: 20080508, end: 20080514
  7. AMLODIPINE [Concomitant]
     Indication: HYPERTENSION
     Route: 048
     Dates: start: 20080301, end: 20080517
  8. LASIX [Concomitant]
     Indication: OEDEMA
     Route: 048
     Dates: start: 20080301
  9. LASIX [Concomitant]
     Route: 042
     Dates: start: 20080513
  10. PRIMPERAN TAB [Concomitant]
     Indication: VOMITING
     Route: 048
     Dates: start: 20080201, end: 20080519
  11. FERROMIA [Concomitant]
     Indication: ANAEMIA
     Route: 048
     Dates: start: 20080201
  12. MAGMITT [Concomitant]
     Indication: CONSTIPATION
     Route: 048
  13. PROTECADIN [Concomitant]
     Indication: PROPHYLAXIS AGAINST GASTROINTESTINAL ULCER
     Route: 048
  14. GABAPEN [Concomitant]
     Indication: CANCER PAIN
     Route: 048
  15. MS-TWICELON [Concomitant]
     Indication: CANCER PAIN
     Route: 048
  16. ISOVORIN [Concomitant]
     Route: 041
     Dates: start: 20080221, end: 20080306
  17. ELPLAT [Suspect]
     Indication: COLON CANCER
     Route: 041
     Dates: start: 20080306, end: 20080306
  18. DECADRON [Concomitant]
     Dosage: 8 MG
     Route: 041
     Dates: start: 20080221, end: 20080526
  19. KYTRIL [Concomitant]
     Dosage: 3 MG
     Route: 041
     Dates: start: 20080221, end: 20080526

REACTIONS (3)
  - DISORIENTATION [None]
  - LEUKOPENIA [None]
  - THROMBOCYTOPENIA [None]
